FAERS Safety Report 20363537 (Version 1)
Quarter: 2022Q1

REPORT INFORMATION
  Report Type: Spontaneous
  Country: US (occurrence: None)
  Receive Date: 20220121
  Receipt Date: 20220121
  Transmission Date: 20220423
  Serious: No
  Sender: FDA-Public Use
  Company Number: 2021A896274

PATIENT
  Age: 804 Month

DRUGS (1)
  1. PULMICORT FLEXHALER [Suspect]
     Active Substance: BUDESONIDE
     Indication: COVID-19
     Dosage: 180 UG 4 PUFFS, TWICE DAILY.
     Route: 055
     Dates: start: 20211221

REACTIONS (5)
  - Confusional state [Unknown]
  - Wrong technique in device usage process [Unknown]
  - Off label use [Unknown]
  - Product use issue [Unknown]
  - Device use issue [Unknown]

NARRATIVE: CASE EVENT DATE: 20211201
